FAERS Safety Report 13276468 (Version 10)
Quarter: 2018Q2

REPORT INFORMATION
  Report Type: Report from Study
  Country: AT (occurrence: AT)
  Receive Date: 20170228
  Receipt Date: 20180604
  Transmission Date: 20180711
  Serious: Yes (Hospitalization, Other)
  Sender: FDA-Public Use
  Company Number: AT-INCYTE CORPORATION-2016IN004470

PATIENT

DRUGS (32)
  1. JAKAVI [Suspect]
     Active Substance: RUXOLITINIB
     Dosage: 30 MG, UNK
     Route: 048
     Dates: start: 20160825
  2. EUTHYROX [Concomitant]
     Active Substance: LEVOTHYROXINE SODIUM
     Indication: PRODUCT USED FOR UNKNOWN INDICATION
     Dosage: 88 UG, QD
     Route: 065
  3. PANTOLOC [Concomitant]
     Active Substance: PANTOPRAZOLE SODIUM
     Indication: PRODUCT USED FOR UNKNOWN INDICATION
     Dosage: 20 MG, QD
     Route: 065
  4. FOLSAN [Concomitant]
     Active Substance: FOLIC ACID
     Indication: PRODUCT USED FOR UNKNOWN INDICATION
     Dosage: 5 MG, QD (1-0-0)
     Route: 065
  5. KCL [Concomitant]
     Active Substance: POTASSIUM CHLORIDE
     Indication: PRODUCT USED FOR UNKNOWN INDICATION
     Dosage: UNK UNK, PRN
     Route: 065
  6. MEXALEN [Concomitant]
     Active Substance: ACETAMINOPHEN
     Indication: PRODUCT USED FOR UNKNOWN INDICATION
     Dosage: 500 MG, PRN
     Route: 065
  7. THROMBO ASS [Concomitant]
     Active Substance: ASPIRIN
     Indication: THROMBOSIS
     Dosage: 100 MG, QD (0-1-0)
     Route: 065
     Dates: start: 201512
  8. AUGMENTIN [Concomitant]
     Active Substance: AMOXICILLIN\CLAVULANATE POTASSIUM
     Indication: COUGH
     Dosage: 1 G, UNK
     Route: 065
     Dates: start: 201512, end: 201512
  9. JAKAVI [Suspect]
     Active Substance: RUXOLITINIB
     Dosage: 20 MG, QD
     Route: 048
     Dates: start: 20170714
  10. CIPROXIN [Concomitant]
     Active Substance: CIPROFLOXACIN
     Indication: PYREXIA
     Dosage: UNK
     Route: 065
     Dates: start: 201509, end: 201509
  11. JAKAVI [Suspect]
     Active Substance: RUXOLITINIB
     Dosage: 20 MG, UNK
     Route: 048
     Dates: start: 20160210, end: 20160824
  12. TOREM [Concomitant]
     Active Substance: TORSEMIDE
     Indication: PRODUCT USED FOR UNKNOWN INDICATION
     Dosage: 10 MG, BID (1-1-0)
     Route: 065
  13. CONCOR [Concomitant]
     Active Substance: BISOPROLOL FUMARATE
     Indication: PRODUCT USED FOR UNKNOWN INDICATION
     Dosage: 2-5 MG, QD
     Route: 065
  14. TAVANIC [Concomitant]
     Active Substance: LEVOFLOXACIN
     Dosage: 500 MG, BID (1-0-1)
     Route: 065
     Dates: start: 201603, end: 201603
  15. DICLOFENAC [Concomitant]
     Active Substance: DICLOFENAC
     Indication: CHEST PAIN
     Dosage: 50 MG, QD (1X DAILY)
     Route: 065
     Dates: start: 201602, end: 201603
  16. CUROCEF [Concomitant]
     Active Substance: CEFUROXIME SODIUM
     Indication: PROPHYLAXIS
     Dosage: 1.5 G, TID (3X1)
     Route: 065
     Dates: start: 201605, end: 201605
  17. JAKAVI [Suspect]
     Active Substance: RUXOLITINIB
     Dosage: 10 MG, UNK
     Route: 048
     Dates: start: 201512, end: 20160209
  18. APREDNISLON [Concomitant]
     Active Substance: PREDNISOLONE
     Indication: PRODUCT USED FOR UNKNOWN INDICATION
     Dosage: 25 MG, (HALF) QD
     Route: 065
  19. LOVENOX [Concomitant]
     Active Substance: ENOXAPARIN SODIUM
     Indication: PRODUCT USED FOR UNKNOWN INDICATION
     Dosage: 40 MG, QD (0-0-1)
     Route: 065
     Dates: start: 201511, end: 201511
  20. TAVANIC [Concomitant]
     Active Substance: LEVOFLOXACIN
     Indication: PNEUMONIA
     Dosage: 750 MG, QD (1-0-0))
     Route: 065
     Dates: start: 201511, end: 201511
  21. TRITTICO [Concomitant]
     Active Substance: TRAZODONE HYDROCHLORIDE
     Indication: PRODUCT USED FOR UNKNOWN INDICATION
     Dosage: 50 MG, QD (0-0-1)
     Route: 065
  22. PROCORALAN [Concomitant]
     Active Substance: IVABRADINE
     Indication: PRODUCT USED FOR UNKNOWN INDICATION
     Dosage: 5 MG, BID (1-0-1)
     Route: 065
  23. TAZONAM [Concomitant]
     Active Substance: TAZOBACTAM
     Indication: PNEUMONIA
     Dosage: 0.5 G, UNK(3X1)
     Route: 065
     Dates: start: 201511, end: 201511
  24. DICLOBENE [Concomitant]
     Active Substance: DICLOFENAC SODIUM
     Indication: PRODUCT USED FOR UNKNOWN INDICATION
     Dosage: 50 MG, PRN
     Route: 065
     Dates: start: 201511, end: 201511
  25. THROMBOREDUCTIN [Concomitant]
     Indication: PRODUCT USED FOR UNKNOWN INDICATION
     Dosage: UNK
     Route: 065
  26. VIDAZA [Concomitant]
     Active Substance: AZACITIDINE
     Indication: MYELOFIBROSIS
     Dosage: UNK
     Route: 065
     Dates: start: 201705
  27. MOLAXOLE [Concomitant]
     Active Substance: POLYETHYLENE GLYCOL 3350\POTASSIUM CHLORIDE\SODIUM BICARBONATE\SODIUM CHLORIDE
     Indication: PRODUCT USED FOR UNKNOWN INDICATION
     Dosage: UNK UNK, QD (1-0-0)
     Route: 065
  28. TAZONAM [Concomitant]
     Active Substance: TAZOBACTAM
     Indication: BACTERAEMIA
     Dosage: 4.5 MG, QD X 3
     Route: 065
  29. JAKAVI [Suspect]
     Active Substance: RUXOLITINIB
     Indication: MYELOFIBROSIS
     Dosage: 20 MG, QD
     Route: 048
     Dates: start: 201512
  30. RETACRIT [Concomitant]
     Active Substance: EPOETIN ALFA-EPBX
     Indication: PRODUCT USED FOR UNKNOWN INDICATION
     Dosage: UNK
     Route: 065
  31. HYPREN [Concomitant]
     Indication: PRODUCT USED FOR UNKNOWN INDICATION
     Dosage: 2 - 5 MG, QD
     Route: 065
  32. SPIROBENE [Concomitant]
     Active Substance: SPIRONOLACTONE
     Indication: PRODUCT USED FOR UNKNOWN INDICATION
     Dosage: 50 MG, QD (1/2)
     Route: 065

REACTIONS (38)
  - Red blood cell count decreased [Unknown]
  - Concomitant disease aggravated [Recovering/Resolving]
  - Thrombocytopenia [Recovered/Resolved]
  - Cardiac failure [Recovered/Resolved]
  - Pyrexia [Recovered/Resolved]
  - Computerised tomogram thorax abnormal [Recovered/Resolved]
  - Blood phosphorus increased [Unknown]
  - Pleural effusion [Recovered/Resolved]
  - Respiratory failure [Recovered/Resolved]
  - Blood calcium decreased [Unknown]
  - Cystitis [Recovered/Resolved]
  - Haemoglobin decreased [Unknown]
  - Mitral valve incompetence [Recovering/Resolving]
  - Pleuritic pain [Recovering/Resolving]
  - Gingival bleeding [Unknown]
  - Thrombocytopenia [Recovered/Resolved]
  - Urinary tract infection [Recovering/Resolving]
  - Acute kidney injury [Recovered/Resolved]
  - Cough [Recovered/Resolved]
  - C-reactive protein increased [Recovered/Resolved]
  - Pericardial effusion [Recovered/Resolved]
  - Haemothorax [Recovered/Resolved]
  - Bacteraemia [Recovered/Resolved]
  - Bacterial vaginosis [Recovered/Resolved]
  - Haematochezia [Recovering/Resolving]
  - Anal fissure [Not Recovered/Not Resolved]
  - Pyrexia [Recovered/Resolved]
  - Blood magnesium increased [Unknown]
  - Blood urea increased [Unknown]
  - Anaemia [Recovered/Resolved]
  - Haemorrhoids [Not Recovered/Not Resolved]
  - White blood cell count increased [Unknown]
  - General physical health deterioration [Recovered/Resolved]
  - Platelet count increased [Unknown]
  - Post procedural haemorrhage [Recovered/Resolved]
  - Nasopharyngitis [Recovered/Resolved]
  - Epistaxis [Unknown]
  - Chest pain [Recovering/Resolving]

NARRATIVE: CASE EVENT DATE: 20151209
